FAERS Safety Report 4407834-8 (Version None)
Quarter: 2004Q3

REPORT INFORMATION
  Report Type: 
  Country: None (occurrence: None)
  Receive Date: 20040726
  Receipt Date: 20040705
  Transmission Date: 20050211
  Serious: Yes (Life-Threatening, Other)
  Sender: FDA-Public Use
  Company Number: PT-GLAXOSMITHKLINE-B0338311A

PATIENT
  Age: 55 Year
  Sex: Female

DRUGS (1)
  1. REQUIP [Suspect]
     Indication: PARKINSON'S DISEASE
     Dosage: 1MG THREE TIMES PER DAY
     Route: 048

REACTIONS (3)
  - ANURIA [None]
  - HYPOTONIC URINARY BLADDER [None]
  - RENAL FAILURE [None]
